FAERS Safety Report 9612943 (Version 2)
Quarter: 2014Q1

REPORT INFORMATION
  Report Type: Spontaneous
  Country: CA (occurrence: None)
  Receive Date: 20130923
  Receipt Date: 20140218
  Transmission Date: 20141002
  Serious: Yes (Death)
  Sender: FDA-Public Use
  Company Number: GR 13-028

PATIENT
  Age: 15 Year
  Sex: Male

DRUGS (1)
  1. ALLERGENIC EXTRACTS [Suspect]
     Indication: HYPERSENSITIVITY

REACTIONS (1)
  - Death [None]
